FAERS Safety Report 4283543-3 (Version None)
Quarter: 2004Q1

REPORT INFORMATION
  Report Type: 
  Country: None (occurrence: None)
  Receive Date: 20040120
  Receipt Date: 20030407
  Transmission Date: 20041129
  Serious: Yes (Other)
  Sender: FDA-Public Use
  Company Number: NSADSS2003017059

PATIENT
  Age: 29 Year
  Sex: Female
  Weight: 69.4003 kg

DRUGS (1)
  1. PARAGARD T380A (INTRAUTERINE CONTRACEPTIVE DEVICE) INTRAUTERINE DEVICE [Suspect]
     Indication: INTRA-UTERINE CONTRACEPTIVE DEVICE INSERTION
     Dosage: INTRAUTERINE
     Route: 015
     Dates: start: 20010530, end: 20021113

REACTIONS (1)
  - SMEAR CERVIX ABNORMAL [None]
